FAERS Safety Report 23842415 (Version 1)
Quarter: 2024Q2

REPORT INFORMATION
  Report Type: Spontaneous
  Country: US (occurrence: US)
  Receive Date: 20240510
  Receipt Date: 20240510
  Transmission Date: 20240715
  Serious: No
  Sender: FDA-Public Use
  Company Number: US-ALNYLAM PHARMACEUTICALS, INC.-ALN-2024-002122

PATIENT

DRUGS (2)
  1. ONPATTRO [Suspect]
     Active Substance: PATISIRAN SODIUM
     Indication: Hereditary neuropathic amyloidosis
     Dosage: UNK
     Route: 065
  2. ONPATTRO [Suspect]
     Active Substance: PATISIRAN SODIUM
     Dosage: UNK
     Route: 065
     Dates: start: 20240409, end: 20240409

REACTIONS (2)
  - Back pain [Recovered/Resolved]
  - Ill-defined disorder [Unknown]

NARRATIVE: CASE EVENT DATE: 20240409
